FAERS Safety Report 25653002 (Version 1)
Quarter: 2025Q3

REPORT INFORMATION
  Report Type: Spontaneous
  Country: EU (occurrence: EU)
  Receive Date: 20250807
  Receipt Date: 20250807
  Transmission Date: 20251021
  Serious: Yes (Death, Other)
  Sender: ROCHE
  Company Number: None

PATIENT
  Age: 33 Year
  Sex: Female

DRUGS (30)
  1. BEVACIZUMAB [Suspect]
     Active Substance: BEVACIZUMAB
     Indication: Malignant neoplasm progression
     Route: 065
     Dates: start: 200902, end: 200910
  2. BEVACIZUMAB [Suspect]
     Active Substance: BEVACIZUMAB
     Indication: Metastases to skin
     Route: 065
  3. BEVACIZUMAB [Suspect]
     Active Substance: BEVACIZUMAB
     Indication: Metastases to lung
     Route: 065
     Dates: start: 200912
  4. BEVACIZUMAB [Suspect]
     Active Substance: BEVACIZUMAB
     Indication: Metastases to bone
     Route: 065
  5. BEVACIZUMAB [Suspect]
     Active Substance: BEVACIZUMAB
     Indication: Invasive ductal breast carcinoma
  6. CAPECITABINE [Suspect]
     Active Substance: CAPECITABINE
     Indication: Malignant neoplasm progression
     Dosage: DAILY DOSE: 3000 MG MILLIGRAM(S) EVERY DAY
     Route: 048
  7. CAPECITABINE [Suspect]
     Active Substance: CAPECITABINE
     Indication: Invasive ductal breast carcinoma
     Dosage: CYCLES OF 3000 MG, DAILY FOR 3 WEEKS
     Route: 048
     Dates: start: 200902, end: 200910
  8. CAPECITABINE [Suspect]
     Active Substance: CAPECITABINE
     Indication: Metastases to bone
     Dosage: 500 MG, 2X/DAY
     Route: 048
  9. CAPECITABINE [Suspect]
     Active Substance: CAPECITABINE
     Indication: Metastases to lung
  10. CAPECITABINE [Suspect]
     Active Substance: CAPECITABINE
     Indication: Metastases to skin
  11. LAPATINIB [Suspect]
     Active Substance: LAPATINIB
     Indication: Malignant neoplasm progression
     Route: 065
  12. LAPATINIB [Suspect]
     Active Substance: LAPATINIB
     Indication: Metastases to skin
     Dosage: CYCLES OF 2 X 250 MG/DA
     Route: 065
  13. LAPATINIB [Suspect]
     Active Substance: LAPATINIB
     Indication: Metastases to lung
     Route: 065
  14. LAPATINIB [Suspect]
     Active Substance: LAPATINIB
     Indication: Metastases to bone
  15. LAPATINIB [Suspect]
     Active Substance: LAPATINIB
     Indication: Invasive ductal breast carcinoma
  16. CELECOXIB [Suspect]
     Active Substance: CELECOXIB
     Indication: Malignant neoplasm progression
     Dosage: DAILY DOSE: 400 MG MILLIGRAM(S) EVERY DAY
     Route: 065
  17. CELECOXIB [Suspect]
     Active Substance: CELECOXIB
     Indication: Metastases to skin
     Dosage: CYLE OF 400 MG, DAILY FOR 3 WEEKS
     Route: 065
     Dates: start: 200902
  18. CELECOXIB [Suspect]
     Active Substance: CELECOXIB
     Indication: Metastases to lung
     Route: 065
  19. CELECOXIB [Suspect]
     Active Substance: CELECOXIB
     Indication: Metastases to bone
  20. CELECOXIB [Suspect]
     Active Substance: CELECOXIB
     Indication: Invasive ductal breast carcinoma
  21. PACLITAXEL [Suspect]
     Active Substance: PACLITAXEL
     Indication: Malignant neoplasm progression
     Route: 065
     Dates: start: 200912
  22. PACLITAXEL [Suspect]
     Active Substance: PACLITAXEL
     Indication: Metastases to skin
  23. PACLITAXEL [Suspect]
     Active Substance: PACLITAXEL
     Indication: Metastases to bone
  24. PACLITAXEL [Suspect]
     Active Substance: PACLITAXEL
     Indication: Invasive ductal breast carcinoma
  25. PACLITAXEL [Suspect]
     Active Substance: PACLITAXEL
     Indication: Metastases to lung
  26. CARBOPLATIN [Suspect]
     Active Substance: CARBOPLATIN
     Indication: Invasive ductal breast carcinoma
     Route: 065
     Dates: start: 200912
  27. CARBOPLATIN [Suspect]
     Active Substance: CARBOPLATIN
     Indication: Metastases to skin
  28. CARBOPLATIN [Suspect]
     Active Substance: CARBOPLATIN
     Indication: Metastases to lung
  29. CARBOPLATIN [Suspect]
     Active Substance: CARBOPLATIN
     Indication: Metastases to bone
  30. CARBOPLATIN [Suspect]
     Active Substance: CARBOPLATIN
     Indication: Malignant neoplasm progression

REACTIONS (10)
  - Metastases to central nervous system [Unknown]
  - Breast cancer metastatic [Unknown]
  - Malignant neoplasm progression [Unknown]
  - Gait inability [Unknown]
  - Nervous system disorder [Unknown]
  - Metastases to central nervous system [Fatal]
  - Metastatic malignant melanoma [Fatal]
  - Second primary malignancy [Fatal]
  - Spinal stenosis [Unknown]
  - Disease progression [Unknown]

NARRATIVE: CASE EVENT DATE: 20091201
